FAERS Safety Report 8500529-0 (Version None)
Quarter: 2012Q3

REPORT INFORMATION
  Report Type: 
  Country: None (occurrence: None)
  Receive Date: 20120710
  Receipt Date: 20120628
  Transmission Date: 20120928
  Serious: Yes (Hospitalization, Disabling, Other)
  Sender: FDA-Public Use
  Company Number: FR-TEVA-346955ISR

PATIENT
  Sex: Male

DRUGS (4)
  1. OXALIPLATIN [Suspect]
     Indication: RECTAL CANCER
     Dosage: 167 MILLIGRAM;
     Route: 042
     Dates: start: 20120119, end: 20120119
  2. AMIODARONE HCL [Concomitant]
     Indication: ARRHYTHMIA
     Route: 048
  3. FLUOROURACIL [Suspect]
     Indication: RECTAL CANCER
     Dosage: 5510 MILLIGRAM;
     Route: 042
     Dates: start: 20120119, end: 20120119
  4. TENORMIN [Concomitant]
     Indication: ARRHYTHMIA
     Route: 048

REACTIONS (5)
  - OESOPHAGITIS [None]
  - APLASIA [None]
  - STAPHYLOCOCCAL SEPSIS [None]
  - APHTHOUS STOMATITIS [None]
  - ORAL CANDIDIASIS [None]
